FAERS Safety Report 13168906 (Version 1)
Quarter: 2017Q1

REPORT INFORMATION
  Report Type: Spontaneous
  Country: US (occurrence: US)
  Receive Date: 20170131
  Receipt Date: 20170131
  Transmission Date: 20170428
  Serious: Yes (Other)
  Sender: FDA-Public Use
  Company Number: US-PFIZER INC-2017036524

PATIENT
  Age: 50 Year
  Sex: Female
  Weight: 83.91 kg

DRUGS (5)
  1. LYRICA [Suspect]
     Active Substance: PREGABALIN
     Indication: FIBROMYALGIA
     Dosage: 75MG CAPSULE 1 IN THE MORNING AND 1 AT NIGHT.
     Dates: start: 201602, end: 201611
  2. CYMBALTA [Concomitant]
     Active Substance: DULOXETINE HYDROCHLORIDE
     Indication: DEPRESSION
     Dosage: 30MG 1 CAPSULE EVERY DAY
     Route: 048
     Dates: start: 201601
  3. ADDERALL [Concomitant]
     Active Substance: AMPHETAMINE ASPARTATE\AMPHETAMINE SULFATE\DEXTROAMPHETAMINE SACCHARATE\DEXTROAMPHETAMINE SULFATE
     Indication: ATTENTION DEFICIT/HYPERACTIVITY DISORDER
     Dosage: 30 MG, 2X/DAY
     Dates: start: 201601
  4. AMBIEN [Concomitant]
     Active Substance: ZOLPIDEM TARTRATE
     Indication: SLEEP DISORDER
     Dosage: 10MG TAKES IT ONCE AT BEDTIME
     Dates: start: 201601
  5. HYDROCHLOROTHIAZIDE AND LISINOPRIL [Concomitant]
     Active Substance: HYDROCHLOROTHIAZIDE\LISINOPRIL
     Indication: BLOOD PRESSURE ABNORMAL
     Dosage: [HYDROCHLOROTHIAZIDE 12.5MG]/[LISINOPRIL 20MG]
     Route: 048
     Dates: start: 201602, end: 201602

REACTIONS (5)
  - Fall [Recovering/Resolving]
  - Limb injury [Recovering/Resolving]
  - Joint injury [Recovering/Resolving]
  - Arthralgia [Unknown]
  - Haemorrhage [Recovering/Resolving]

NARRATIVE: CASE EVENT DATE: 201612
